FAERS Safety Report 5862825-5 (Version None)
Quarter: 2008Q3

REPORT INFORMATION
  Report Type: 
  Country: None (occurrence: None)
  Receive Date: 20080828
  Receipt Date: 20080822
  Transmission Date: 20090109
  Serious: Yes (Hospitalization)
  Sender: FDA-Public Use
  Company Number: A0693030A

PATIENT
  Age: 58 Year
  Sex: Male
  Weight: 113.6 kg

DRUGS (9)
  1. AVANDIA [Suspect]
     Dosage: 4MG TWICE PER DAY
     Route: 048
     Dates: start: 20041201, end: 20070601
  2. METFORMIN HCL [Concomitant]
     Dates: start: 20050101, end: 20050601
  3. INSULIN [Concomitant]
     Dates: start: 20041201
  4. DIABETA [Concomitant]
     Dates: start: 20041201
  5. LISINOPRIL [Concomitant]
  6. NIFEDIPINE [Concomitant]
  7. FELODIPINE [Concomitant]
  8. ASPIRIN [Concomitant]
  9. POTASSIUM CHLORIDE [Concomitant]

REACTIONS (3)
  - CARDIAC FAILURE CONGESTIVE [None]
  - INJURY [None]
  - PAIN [None]
